FAERS Safety Report 20917681 (Version 1)
Quarter: 2022Q2

REPORT INFORMATION
  Report Type: Spontaneous
  Country: IT (occurrence: IT)
  Receive Date: 20220606
  Receipt Date: 20220606
  Transmission Date: 20220721
  Serious: Yes (Hospitalization, Other)
  Sender: FDA-Public Use
  Company Number: IT-RECORDATI-2022002061

PATIENT
  Age: 23 Year
  Sex: Female

DRUGS (3)
  1. MIRTAZAPINE [Suspect]
     Active Substance: MIRTAZAPINE
     Indication: Product used for unknown indication
     Dosage: UNK
     Route: 065
  2. DEXTROMETHORPHAN HYDROBROMIDE [Suspect]
     Active Substance: DEXTROMETHORPHAN HYDROBROMIDE
     Indication: Product used for unknown indication
     Dosage: UNK
     Route: 065
  3. DYPHYLLINE [Suspect]
     Active Substance: DYPHYLLINE
     Indication: Product used for unknown indication
     Dosage: UNK
     Route: 065

REACTIONS (5)
  - Eyelid myoclonus [Recovered/Resolved]
  - Serotonin syndrome [Recovered/Resolved]
  - Blepharospasm [Recovered/Resolved]
  - Hyperhidrosis [Recovered/Resolved]
  - Intentional overdose [Recovered/Resolved]
